FAERS Safety Report 8452551-0 (Version None)
Quarter: 2012Q2

REPORT INFORMATION
  Report Type: 
  Country: None (occurrence: None)
  Receive Date: 20120620
  Receipt Date: 20120507
  Transmission Date: 20120825
  Serious: No
  Sender: FDA-Public Use
  Company Number: US-VERTEX PHARMACEUTICALS INC.-AE-2012-005468

PATIENT
  Sex: Female
  Weight: 119.8 kg

DRUGS (3)
  1. RIBAVIRIN [Concomitant]
     Indication: HEPATITIS C
     Dates: start: 20120328
  2. PEGASYS [Concomitant]
     Indication: HEPATITIS C
     Route: 058
     Dates: start: 20120328
  3. INCIVEK [Suspect]
     Indication: HEPATITIS C
     Route: 048
     Dates: start: 20120328

REACTIONS (16)
  - MEMORY IMPAIRMENT [None]
  - DYSPEPSIA [None]
  - NAUSEA [None]
  - DEPRESSION [None]
  - PRURITUS [None]
  - RASH [None]
  - VOMITING [None]
  - HYPERSOMNIA [None]
  - WEIGHT INCREASED [None]
  - ASTHENIA [None]
  - FATIGUE [None]
  - GAIT DISTURBANCE [None]
  - ANAEMIA [None]
  - ANGER [None]
  - THYROID FUNCTION TEST ABNORMAL [None]
  - DYSGEUSIA [None]
